FAERS Safety Report 6273221-3 (Version None)
Quarter: 2009Q3

REPORT INFORMATION
  Report Type: 
  Country: None (occurrence: None)
  Receive Date: 20090720
  Receipt Date: 20090703
  Transmission Date: 20100115
  Serious: No
  Sender: FDA-Public Use
  Company Number: US-BAYER-200924375NA

PATIENT
  Sex: Male

DRUGS (1)
  1. LEVITRA [Suspect]
     Indication: ERECTILE DYSFUNCTION

REACTIONS (4)
  - ABDOMINAL DISTENSION [None]
  - ERECTILE DYSFUNCTION [None]
  - FLATULENCE [None]
  - NASAL CONGESTION [None]
